FAERS Safety Report 20737032 (Version 1)
Quarter: 2022Q2

REPORT INFORMATION
  Report Type: Report from Study
  Country: US (occurrence: US)
  Receive Date: 20220421
  Receipt Date: 20220421
  Transmission Date: 20220721
  Serious: No
  Sender: FDA-Public Use
  Company Number: US-NOVARTISTESTPH-NVSC2022US092698

PATIENT
  Age: 83 Year
  Sex: Male
  Weight: 96.16 kg

DRUGS (1)
  1. ENTRESTO [Suspect]
     Active Substance: SACUBITRIL\VALSARTAN
     Indication: Cardiovascular disorder
     Dosage: 100 MG, BID (49/51 MG)
     Route: 048
     Dates: start: 202202

REACTIONS (3)
  - Cough [Recovered/Resolved]
  - Throat irritation [Recovered/Resolved]
  - Product use in unapproved indication [Unknown]

NARRATIVE: CASE EVENT DATE: 20220420
